FAERS Safety Report 15101812 (Version 2)
Quarter: 2019Q1

REPORT INFORMATION
  Report Type: Spontaneous
  Country: US (occurrence: US)
  Receive Date: 20180703
  Receipt Date: 20190301
  Transmission Date: 20190417
  Serious: No
  Sender: FDA-Public Use
  Company Number: US-SHIRE-US201822999

PATIENT
  Age: 38 Year
  Sex: Female

DRUGS (2)
  1. XIIDRA [Suspect]
     Active Substance: LIFITEGRAST
     Indication: DRY EYE
     Dosage: UNK, 2X/DAY:BID
     Route: 047
     Dates: start: 20180521
  2. AVENOVA [Concomitant]
     Active Substance: HYPOCHLOROUS ACID
     Indication: BLEPHARITIS

REACTIONS (4)
  - Eye pain [Recovered/Resolved]
  - Instillation site pain [Recovered/Resolved]
  - Lacrimation increased [Recovered/Resolved]
  - Corneal reflex decreased [Recovered/Resolved]

NARRATIVE: CASE EVENT DATE: 20180606
